FAERS Safety Report 6026360-6 (Version None)
Quarter: 2009Q1

REPORT INFORMATION
  Report Type: 
  Country: None (occurrence: None)
  Receive Date: 20090102
  Receipt Date: 20081222
  Transmission Date: 20090719
  Serious: Yes (Hospitalization, Other)
  Sender: FDA-Public Use
  Company Number: PHHY2008GB33100

PATIENT
  Sex: Male

DRUGS (7)
  1. CLOZARIL [Suspect]
     Indication: SCHIZOPHRENIA
     Dosage: UNK
     Dates: start: 20080227
  2. APOMORPHINE [Concomitant]
  3. CITALOPRAM HYDROBROMIDE [Concomitant]
  4. ASPIRIN [Concomitant]
  5. STALEVO 100 [Concomitant]
  6. LANSOPRAZOLE [Concomitant]
  7. IBUPROFEN TABLETS [Concomitant]

REACTIONS (2)
  - ENDOCARDITIS [None]
  - HAEMOLYTIC ANAEMIA [None]
